FAERS Safety Report 19108260 (Version 3)
Quarter: 2022Q3

REPORT INFORMATION
  Report Type: Report from Study
  Country: US (occurrence: US)
  Receive Date: 20210408
  Receipt Date: 20220920
  Transmission Date: 20221026
  Serious: Yes (Other)
  Sender: FDA-Public Use
  Company Number: US-TAKEDA-2021TUS021979

PATIENT
  Age: 34 Year
  Sex: Female
  Weight: 68 kg

DRUGS (6)
  1. LANADELUMAB [Suspect]
     Active Substance: LANADELUMAB
     Indication: Hereditary angioedema
     Dosage: 300 MILLIGRAM, Q2WEEKS
     Route: 050
     Dates: start: 20210402
  2. LANADELUMAB [Suspect]
     Active Substance: LANADELUMAB
     Indication: Immune system disorder
     Dosage: 300 MILLIGRAM, Q2WEEKS
     Route: 058
     Dates: start: 20210415
  3. LANADELUMAB [Suspect]
     Active Substance: LANADELUMAB
     Dosage: 300 MILLIGRAM, Q4WEEKS
     Route: 058
     Dates: start: 20210415
  4. MELATONIN [Concomitant]
     Active Substance: MELATONIN
  5. FIRAZYR [Concomitant]
     Active Substance: ICATIBANT ACETATE
  6. MELATONIN;THEANINE [Concomitant]

REACTIONS (6)
  - Loss of consciousness [Recovered/Resolved]
  - Syncope [Unknown]
  - Tinnitus [Recovered/Resolved]
  - Dizziness [Recovered/Resolved]
  - Infusion related reaction [Unknown]
  - Heart rate increased [Unknown]

NARRATIVE: CASE EVENT DATE: 20210402
